FAERS Safety Report 4543051-9 (Version None)
Quarter: 2005Q1

REPORT INFORMATION
  Report Type: 
  Country: None (occurrence: None)
  Receive Date: 20050103
  Receipt Date: 20041220
  Transmission Date: 20050727
  Serious: Yes (Hospitalization)
  Sender: FDA-Public Use
  Company Number: PHHO2004CA18165

PATIENT
  Age: 56 Year
  Sex: Male

DRUGS (20)
  1. CLOZARIL [Suspect]
     Dosage: 50 MG, QHS
     Dates: start: 20041223
  2. CLOZARIL [Suspect]
     Dosage: 100MG DAILY DOSE
     Dates: start: 20040317
  3. EFFEXOR XR [Concomitant]
  4. LIPITOR [Concomitant]
  5. PANTOPRAZOLE SODIUM [Concomitant]
  6. PARIET [Concomitant]
     Dates: start: 20041222
  7. ASPIRIN [Concomitant]
  8. GLYBURIDE [Concomitant]
  9. ALTACE [Concomitant]
  10. DOCUSATE [Concomitant]
  11. ATIVAN [Concomitant]
  12. DOMPERIDONE [Concomitant]
  13. OVOL [Concomitant]
  14. LOXAPINE [Concomitant]
  15. SEROQUEL [Concomitant]
  16. ZOPICLONE [Concomitant]
  17. BISACODYL [Concomitant]
  18. ACETAMINOPHEN [Concomitant]
  19. NOVOGESIC [Concomitant]
  20. FLEET RECTAROID ENEMA [Concomitant]

REACTIONS (4)
  - ABDOMINAL DISTENSION [None]
  - COLITIS ISCHAEMIC [None]
  - CONSTIPATION [None]
  - RECTAL HAEMORRHAGE [None]
